FAERS Safety Report 4342079-1 (Version None)
Quarter: 2004Q2

REPORT INFORMATION
  Report Type: 
  Country: None (occurrence: None)
  Receive Date: 20040420
  Receipt Date: 20040413
  Transmission Date: 20050107
  Serious: Yes (Hospitalization)
  Sender: FDA-Public Use
  Company Number: ES-MERCK-0404ESP00023

PATIENT
  Sex: Male

DRUGS (2)
  1. [THERAPY UNSPECIFIED] [Concomitant]
     Route: 065
  2. PROPECIA [Suspect]
     Indication: ALOPECIA
     Route: 065

REACTIONS (1)
  - CEREBRAL INFARCTION [None]
